FAERS Safety Report 4967607-4 (Version None)
Quarter: 2006Q2

REPORT INFORMATION
  Report Type: 
  Country: None (occurrence: None)
  Receive Date: 20060407
  Receipt Date: 20060407
  Transmission Date: 20061013
  Serious: Yes (Hospitalization, Other)
  Sender: FDA-Public Use
  Company Number: None

PATIENT
  Sex: Male
  Weight: 89.9 kg

DRUGS (3)
  1. INTRON A [Suspect]
     Indication: RENAL CELL CARCINOMA STAGE UNSPECIFIED
     Dosage: 3 MG
     Dates: start: 20060124
  2. KEFLEX [Concomitant]
  3. LEVAQUIN [Concomitant]

REACTIONS (10)
  - ASTHENIA [None]
  - ATELECTASIS [None]
  - BLOOD CULTURE POSITIVE [None]
  - CARDIAC FAILURE CONGESTIVE [None]
  - LUNG INFILTRATION [None]
  - NAUSEA [None]
  - PNEUMONIA [None]
  - PRODUCTIVE COUGH [None]
  - STAPHYLOCOCCAL INFECTION [None]
  - VOMITING [None]
